FAERS Safety Report 7002963-7 (Version None)
Quarter: 2010Q3

REPORT INFORMATION
  Report Type: 
  Country: None (occurrence: None)
  Receive Date: 20100920
  Receipt Date: 20100908
  Transmission Date: 20110219
  Serious: Yes (Hospitalization, Other)
  Sender: FDA-Public Use
  Company Number: US-AMGEN-QUU436867

PATIENT
  Sex: Female

DRUGS (4)
  1. NEULASTA [Suspect]
     Indication: CHEMOTHERAPY
     Route: 065
     Dates: start: 20081010
  2. TAXOL [Concomitant]
     Dates: start: 20080101, end: 20081010
  3. CARBOPLATIN [Concomitant]
     Dates: start: 20080101, end: 20081010
  4. AVASTIN [Concomitant]
     Dates: start: 20080101, end: 20081010

REACTIONS (8)
  - CARDIAC PACEMAKER INSERTION [None]
  - COUGH [None]
  - DISCOMFORT [None]
  - DYSPHONIA [None]
  - GANGRENE [None]
  - OEDEMA PERIPHERAL [None]
  - SKIN LESION [None]
  - STAPHYLOCOCCAL INFECTION [None]
